FAERS Safety Report 5512012-5 (Version None)
Quarter: 2007Q4

REPORT INFORMATION
  Report Type: 
  Country: None (occurrence: None)
  Receive Date: 20071109
  Receipt Date: 20071101
  Transmission Date: 20080405
  Serious: Yes (Other)
  Sender: FDA-Public Use
  Company Number: US-PFIZER INC-2007092890

PATIENT
  Sex: Male

DRUGS (2)
  1. LIPITOR [Suspect]
  2. ZOCOR [Suspect]

REACTIONS (6)
  - ADVERSE DRUG REACTION [None]
  - BLOOD BILIRUBIN ABNORMAL [None]
  - DRUG ADMINISTRATION ERROR [None]
  - GILBERT'S SYNDROME [None]
  - LIVER FUNCTION TEST ABNORMAL [None]
  - NO ADVERSE REACTION [None]
